FAERS Safety Report 14223617 (Version 1)
Quarter: 2017Q4

REPORT INFORMATION
  Report Type: Spontaneous
  Country: US (occurrence: US)
  Receive Date: 20171124
  Receipt Date: 20171124
  Transmission Date: 20180321
  Serious: No
  Sender: FDA-Public Use
  Company Number: US-GLENMARK PHARMACEUTICALS-2017GMK029011

PATIENT

DRUGS (1)
  1. RANITIDINE HYDROCHLORIDE. [Suspect]
     Active Substance: RANITIDINE HYDROCHLORIDE
     Indication: GASTRIC DISORDER
     Dosage: 150 MG OR 300 MG, QD
     Route: 048
     Dates: start: 2017

REACTIONS (2)
  - Product quality issue [Unknown]
  - Drug screen false positive [Unknown]

NARRATIVE: CASE EVENT DATE: 20170821
